FAERS Safety Report 7918524-9 (Version None)
Quarter: 2011Q4

REPORT INFORMATION
  Report Type: 
  Country: None (occurrence: None)
  Receive Date: 20111116
  Receipt Date: 20111114
  Transmission Date: 20120403
  Serious: Yes (Other)
  Sender: FDA-Public Use
  Company Number: US-PFIZER INC-2011233923

PATIENT
  Sex: Female

DRUGS (3)
  1. PREMARIN [Suspect]
     Indication: OFF LABEL USE
     Dosage: UNK
     Route: 067
  2. PREMARIN [Suspect]
     Indication: KIDNEY INFECTION
  3. PREMARIN [Suspect]
     Indication: URINARY TRACT INFECTION

REACTIONS (5)
  - VAGINAL ULCERATION [None]
  - VULVOVAGINAL ERYTHEMA [None]
  - VAGINAL MUCOSAL BLISTERING [None]
  - INFECTION [None]
  - VULVOVAGINAL BURNING SENSATION [None]
